FAERS Safety Report 6091300-0 (Version None)
Quarter: 2009Q1

REPORT INFORMATION
  Report Type: 
  Country: None (occurrence: None)
  Receive Date: 20090220
  Receipt Date: 20090220
  Transmission Date: 20090719
  Serious: Yes (Disabling)
  Sender: FDA-Public Use
  Company Number: None

PATIENT
  Age: 40 Year
  Sex: Female
  Weight: 77.1115 kg

DRUGS (1)
  1. DAWNMIST STRENGTH NOT GIVEN DONOVAN INDUSTRIES, INC. [Suspect]
     Indication: DENTAL DISORDER PROPHYLAXIS
     Dosage: MOUTH RINSE PRN PO  (ONCE)
     Route: 048
     Dates: start: 20090216, end: 20090216

REACTIONS (3)
  - PEAK EXPIRATORY FLOW RATE DECREASED [None]
  - THROAT TIGHTNESS [None]
  - WHEEZING [None]
